FAERS Safety Report 5911308-2 (Version None)
Quarter: 2008Q4

REPORT INFORMATION
  Report Type: 
  Country: None (occurrence: None)
  Receive Date: 20081007
  Receipt Date: 20080925
  Transmission Date: 20090506
  Serious: Yes (Other)
  Sender: FDA-Public Use
  Company Number: US-PFIZER INC-2008081907

PATIENT
  Sex: Female

DRUGS (1)
  1. CHANTIX [Suspect]
     Indication: SMOKING CESSATION THERAPY
     Dates: start: 20070301

REACTIONS (9)
  - AGGRESSION [None]
  - ANEURYSM [None]
  - CONVULSION [None]
  - DEPRESSION [None]
  - LOSS OF CONSCIOUSNESS [None]
  - MOOD SWINGS [None]
  - PANIC ATTACK [None]
  - SURGERY [None]
  - VENTRICULO-VASCULAR SHUNT [None]
